FAERS Safety Report 9548706 (Version 1)
Quarter: 2013Q2

REPORT INFORMATION
  Report Type: Spontaneous
  Country: US (occurrence: None)
  Receive Date: 20130607
  Receipt Date: 20130607
  Transmission Date: 20140414
  Serious: Yes (Hospitalization)
  Sender: FDA-Public Use
  Company Number: SP06239

PATIENT
  Age: 60 Year
  Sex: Female

DRUGS (10)
  1. XIFAXAN [Suspect]
     Indication: HEPATIC CIRRHOSIS
     Dosage: 1100 MG (550 MG, 2 IN 1 D), ORAL
     Route: 048
     Dates: start: 201204
  2. ADVAIR [Concomitant]
  3. CIPRO [Concomitant]
  4. CLINDAMYCIN [Concomitant]
  5. PREVACID [Concomitant]
  6. LISINOPRIL [Concomitant]
  7. METHYLPREDNISOLONE [Concomitant]
  8. NYSTATIN [Concomitant]
  9. SIMVASTATIN [Concomitant]
  10. VENTOLIN [Concomitant]

REACTIONS (2)
  - Pneumonia [None]
  - Asthenia [None]
